FAERS Safety Report 4965863-X (Version None)
Quarter: 2006Q2

REPORT INFORMATION
  Report Type: 
  Country: None (occurrence: None)
  Receive Date: 20060407
  Receipt Date: 20060329
  Transmission Date: 20061013
  Serious: Yes (Other)
  Sender: FDA-Public Use
  Company Number: US-JNJFOC-20060307885

PATIENT
  Sex: Male
  Weight: 58.51 kg

DRUGS (23)
  1. FENTANYL [Suspect]
     Route: 062
  2. ORAVESCENT FENTANYL CITRATE [Suspect]
     Indication: BREAKTHROUGH PAIN
     Route: 002
  3. FENTANYL [Suspect]
     Route: 065
  4. FENTANYL [Suspect]
     Route: 065
  5. FENTANYL [Suspect]
     Route: 065
  6. FENTANYL [Suspect]
     Route: 065
  7. FENTANYL [Suspect]
     Route: 065
  8. FENTANYL [Suspect]
     Route: 065
  9. FENTANYL [Suspect]
     Route: 065
  10. FENTANYL [Suspect]
     Route: 065
  11. FENTANYL [Suspect]
     Route: 065
  12. FENTANYL [Suspect]
     Route: 065
  13. FENTANYL [Suspect]
     Route: 065
  14. FENTANYL [Suspect]
     Route: 065
  15. HYDROMORPHONE HYDROCHLORIDE [Suspect]
     Route: 048
  16. DRONABINOL [Suspect]
     Indication: DECREASED APPETITE
     Route: 048
  17. OXYCODONE [Suspect]
     Route: 048
  18. MEPERIDINE HYDROCHLORIDE [Suspect]
     Route: 030
  19. MORPHINE [Suspect]
     Route: 030
  20. UROCIT-K [Concomitant]
     Indication: DRUG USE FOR UNKNOWN INDICATION
     Route: 065
  21. PROMETHAZINE HCL [Concomitant]
     Indication: NAUSEA
     Route: 065
  22. CARISOPRODOL [Concomitant]
     Indication: DRUG USE FOR UNKNOWN INDICATION
     Route: 065
  23. DIAZEPAM [Concomitant]
     Indication: DRUG USE FOR UNKNOWN INDICATION
     Route: 065

REACTIONS (1)
  - CONVULSION [None]
